FAERS Safety Report 10302225 (Version 1)
Quarter: 2014Q3

REPORT INFORMATION
  Report Type: Spontaneous
  Country: US (occurrence: US)
  Receive Date: 20140714
  Receipt Date: 20140714
  Transmission Date: 20150326
  Serious: Yes (Hospitalization, Other)
  Sender: FDA-Public Use
  Company Number: US-JNJFOC-20140705691

PATIENT
  Sex: Female
  Weight: 58.97 kg

DRUGS (3)
  1. REMICADE [Suspect]
     Active Substance: INFLIXIMAB
     Indication: CROHN^S DISEASE
     Dosage: 5 YEARS PRIOR TO THE DATE OF THE REPORT
     Route: 042
  2. REMICADE [Suspect]
     Active Substance: INFLIXIMAB
     Indication: CROHN^S DISEASE
     Route: 042
     Dates: end: 2014
  3. REMICADE [Suspect]
     Active Substance: INFLIXIMAB
     Indication: CROHN^S DISEASE
     Dosage: 5 YEARS PRIOR TO THE DATE OF THE REPORT
     Route: 042
     Dates: start: 2009

REACTIONS (6)
  - Weight increased [Not Recovered/Not Resolved]
  - Crohn^s disease [Unknown]
  - Clostridium difficile infection [Recovered/Resolved]
  - Pustular psoriasis [Not Recovered/Not Resolved]
  - Intestinal stenosis [Recovered/Resolved]
  - Adverse event [Unknown]

NARRATIVE: CASE EVENT DATE: 2009
